FAERS Safety Report 7233543-6 (Version None)
Quarter: 2011Q1

REPORT INFORMATION
  Report Type: 
  Country: None (occurrence: None)
  Receive Date: 20110119
  Receipt Date: 20100510
  Transmission Date: 20110831
  Serious: No
  Sender: FDA-Public Use
  Company Number: US-TEVA-235022USA

PATIENT
  Sex: Female

DRUGS (3)
  1. COPAXONE [Suspect]
     Indication: MULTIPLE SCLEROSIS
     Route: 058
  2. INSULIN [Suspect]
  3. INSULIN DETEMIR [Suspect]

REACTIONS (7)
  - CHEST PAIN [None]
  - THROAT TIGHTNESS [None]
  - DYSPHAGIA [None]
  - PALPITATIONS [None]
  - MUSCLE SPASMS [None]
  - HEADACHE [None]
  - BURNING SENSATION [None]
